FAERS Safety Report 9509658 (Version 1)
Quarter: 2013Q3

REPORT INFORMATION
  Report Type: Spontaneous
  Country: US (occurrence: US)
  Receive Date: 20130909
  Receipt Date: 20130909
  Transmission Date: 20140515
  Serious: No
  Sender: FDA-Public Use
  Company Number: US-BRISTOL-MYERS SQUIBB COMPANY-18891432

PATIENT
  Age: 48 Year
  Sex: Male
  Weight: 86.17 kg

DRUGS (4)
  1. ABILIFY TABS 5 MG [Suspect]
     Indication: DEPRESSION
     Dosage: LAST DOSE:DEC2012
     Dates: start: 201210
  2. DEPAKOTE [Concomitant]
  3. AMBIEN [Concomitant]
  4. VIIBRYD [Concomitant]

REACTIONS (2)
  - Depressed mood [Unknown]
  - Weight increased [Unknown]
